FAERS Safety Report 8908530 (Version 1)
Quarter: 2012Q4

REPORT INFORMATION
  Report Type: 
  Country: BR (occurrence: BR)
  Receive Date: 20121114
  Receipt Date: 20121114
  Transmission Date: 20130627
  Serious: Yes (Other)
  Sender: FDA-Public Use
  Company Number: BR-PFIZER INC-2012279726

PATIENT
  Age: 67 Year
  Sex: Male
  Weight: 108 kg

DRUGS (6)
  1. CHAMPIX [Suspect]
     Indication: SMOKING CESSATION THERAPY
     Dosage: UNK
     Route: 048
     Dates: start: 20121031, end: 2012
  2. CHAMPIX [Suspect]
     Dosage: one tablet twice daily
     Route: 048
     Dates: start: 2012, end: 201211
  3. CAPTOPRIL [Concomitant]
     Indication: BLOOD PRESSURE HIGH
     Dosage: 25 mg (one tablet), 2x/day
  4. CARDIZEM [Concomitant]
     Indication: BLOOD PRESSURE HIGH
     Dosage: 30 mg (one tablet), 2x/day
  5. SINVALIP [Concomitant]
     Indication: CHOLESTEROL
     Dosage: 20 mg (one tablet), 1x/day
  6. ZYLORIC [Concomitant]
     Indication: URIC ACID
     Dosage: 100 mg (one tablet), 1x/day

REACTIONS (1)
  - Bladder disorder [Unknown]
